FAERS Safety Report 10345394 (Version 1)
Quarter: 2014Q3

REPORT INFORMATION
  Report Type: Spontaneous
  Country: PT (occurrence: None)
  Receive Date: 20140723
  Receipt Date: 20140723
  Transmission Date: 20150326
  Serious: Yes (Disabling, Other)
  Sender: FDA-Public Use
  Company Number: FK201402779

PATIENT
  Age: 69 Year
  Sex: Male

DRUGS (3)
  1. CEFOXITIN [Suspect]
     Active Substance: CEFOXITIN\CEFOXITIN SODIUM
     Indication: PRODUCT USED FOR UNKNOWN INDICATION
     Dates: start: 20081030
  2. GENTAMICIN [Suspect]
     Active Substance: GENTAMICIN
     Indication: PRODUCT USED FOR UNKNOWN INDICATION
     Dosage: OTHER
     Dates: start: 20081030
  3. SALINE [Concomitant]
     Active Substance: SODIUM CHLORIDE

REACTIONS (6)
  - Device related infection [None]
  - Off label use [None]
  - Genital swelling [None]
  - Genital pain [None]
  - Penile operation [None]
  - Oedema peripheral [None]
